FAERS Safety Report 10500170 (Version 1)
Quarter: 2014Q4

REPORT INFORMATION
  Report Type: Spontaneous
  Country: US (occurrence: US)
  Receive Date: 20141006
  Receipt Date: 20141006
  Transmission Date: 20150528
  Serious: No
  Sender: FDA-Public Use
  Company Number: US-AMGEN INC.-USASP2014050284

PATIENT
  Age: 73 Year
  Sex: Female

DRUGS (1)
  1. PROLIA [Suspect]
     Active Substance: DENOSUMAB
     Indication: OSTEOPOROSIS POSTMENOPAUSAL
     Dosage: UNK
     Route: 065
     Dates: start: 201405

REACTIONS (6)
  - Nasopharyngitis [Unknown]
  - Dyspnoea [Unknown]
  - Dental caries [Unknown]
  - Tooth disorder [Unknown]
  - Ear discomfort [Unknown]
  - Seasonal allergy [Unknown]

NARRATIVE: CASE EVENT DATE: 201406
